FAERS Safety Report 4967126-5 (Version None)
Quarter: 2006Q2

REPORT INFORMATION
  Report Type: 
  Country: None (occurrence: None)
  Receive Date: 20060403
  Receipt Date: 20060322
  Transmission Date: 20061013
  Serious: Yes (Life-Threatening)
  Sender: FDA-Public Use
  Company Number: 8015837

PATIENT
  Age: 11 Year
  Weight: 32 kg

DRUGS (2)
  1. KEPPRA [Suspect]
     Indication: COMPLEX PARTIAL SEIZURES
     Dosage: 750 MG 2/D PO
     Route: 048
     Dates: start: 20060110, end: 20060307
  2. CARBAMAZEPINE [Concomitant]

REACTIONS (2)
  - ANGIONEUROTIC OEDEMA [None]
  - EYE SWELLING [None]
